FAERS Safety Report 9782694 (Version 2)
Quarter: 2014Q1

REPORT INFORMATION
  Report Type: Spontaneous
  Country: CH (occurrence: CH)
  Receive Date: 20131226
  Receipt Date: 20140127
  Transmission Date: 20141002
  Serious: Yes (Hospitalization, Other)
  Sender: FDA-Public Use
  Company Number: CH-SA-2013SA130919

PATIENT
  Sex: Female
  Weight: 60.5 kg

DRUGS (3)
  1. ZALTRAP [Suspect]
     Indication: COLORECTAL CANCER METASTATIC
     Route: 042
     Dates: start: 20131021, end: 20131021
  2. ZALTRAP [Suspect]
     Indication: COLORECTAL CANCER METASTATIC
     Route: 042
     Dates: start: 20131104, end: 20131104
  3. ZALTRAP [Suspect]
     Indication: COLORECTAL CANCER METASTATIC
     Route: 042
     Dates: start: 20131209, end: 20131209

REACTIONS (12)
  - Posterior reversible encephalopathy syndrome [Recovered/Resolved]
  - Headache [Recovered/Resolved]
  - Fall [Recovered/Resolved]
  - Confusional state [Recovered/Resolved]
  - Visual impairment [Recovered/Resolved]
  - Dizziness [Recovered/Resolved]
  - Grand mal convulsion [Recovered/Resolved]
  - Enuresis [Recovered/Resolved]
  - Mental impairment [Recovered/Resolved]
  - Diastolic hypertension [Unknown]
  - Proteinuria [Recovered/Resolved]
  - Somnolence [Recovered/Resolved]
